FAERS Safety Report 7733974-1 (Version None)
Quarter: 2011Q3

REPORT INFORMATION
  Report Type: 
  Country: None (occurrence: None)
  Receive Date: 20110907
  Receipt Date: 20110831
  Transmission Date: 20111222
  Serious: Yes (Other)
  Sender: FDA-Public Use
  Company Number: US-ROCHE-439412

PATIENT
  Sex: Female

DRUGS (2)
  1. BONIVA [Suspect]
     Route: 048
     Dates: start: 20060227
  2. BONIVA [Suspect]
     Route: 048

REACTIONS (5)
  - MASS [None]
  - CARDIAC OPERATION [None]
  - FLATULENCE [None]
  - ERUCTATION [None]
  - BONE DISORDER [None]
